FAERS Safety Report 17417608 (Version 1)
Quarter: 2020Q1

REPORT INFORMATION
  Report Type: Spontaneous
  Country: US (occurrence: US)
  Receive Date: 20200214
  Receipt Date: 20200214
  Transmission Date: 20200409
  Serious: Yes (Death)
  Sender: FDA-Public Use
  Company Number: US-ROCHE-2549824

PATIENT
  Age: 63 Year
  Sex: Female

DRUGS (2)
  1. COTELLIC [Suspect]
     Active Substance: COBIMETINIB
     Indication: NEOPLASM MALIGNANT
     Route: 048
     Dates: start: 20200109
  2. ZELBORAF [Suspect]
     Active Substance: VEMURAFENIB
     Indication: NEOPLASM MALIGNANT
     Route: 048
     Dates: start: 20200109

REACTIONS (1)
  - Death [Fatal]

NARRATIVE: CASE EVENT DATE: 20200205
